FAERS Safety Report 7513405-7 (Version None)
Quarter: 2011Q2

REPORT INFORMATION
  Report Type: 
  Country: None (occurrence: None)
  Receive Date: 20110531
  Receipt Date: 20110523
  Transmission Date: 20111010
  Serious: Yes (Other)
  Sender: FDA-Public Use
  Company Number: MA-BAXTER-2011BH017224

PATIENT
  Age: 51 Year
  Sex: Female

DRUGS (5)
  1. PREDNISONE [Suspect]
     Indication: VASCULITIS
     Route: 048
  2. METHYLPREDNISOLONE [Suspect]
     Indication: VASCULITIS
     Route: 065
  3. CEFTRIAXONE [Concomitant]
     Indication: SEPSIS
     Route: 065
  4. PREDNISONE [Suspect]
     Route: 048
  5. CYCLOPHOSPHAMIDE [Suspect]
     Indication: VASCULITIS
     Route: 065

REACTIONS (1)
  - KAPOSI'S SARCOMA [None]
